FAERS Safety Report 15749179 (Version 8)
Quarter: 2019Q2

REPORT INFORMATION
  Report Type: Report from Study
  Country: CA (occurrence: CA)
  Receive Date: 20181221
  Receipt Date: 20190419
  Transmission Date: 20190711
  Serious: Yes (Hospitalization, Other)
  Sender: FDA-Public Use
  Company Number: PHHY2016CA109152

PATIENT
  Age: 33 Year
  Sex: Female

DRUGS (15)
  1. ILARIS [Suspect]
     Active Substance: CANAKINUMAB
     Dosage: 150 MG, Q2W
     Route: 058
     Dates: start: 20180809
  2. DALTEPARIN [Concomitant]
     Active Substance: DALTEPARIN
     Dosage: UNK
  3. ILARIS [Suspect]
     Active Substance: CANAKINUMAB
     Dosage: 150 MG, EVERY 2 WEEKS
     Route: 058
     Dates: start: 20171006
  4. ILARIS [Suspect]
     Active Substance: CANAKINUMAB
     Dosage: 150 MG, Q2W
     Route: 058
     Dates: start: 20180712
  5. ILARIS [Suspect]
     Active Substance: CANAKINUMAB
     Dosage: 150 MG, Q2W
     Route: 058
     Dates: start: 20181113
  6. ILARIS [Suspect]
     Active Substance: CANAKINUMAB
     Dosage: 150 MG, Q2W
     Route: 058
     Dates: start: 20190207
  7. ILARIS [Suspect]
     Active Substance: CANAKINUMAB
     Dosage: 150 MG, Q2W
     Route: 058
     Dates: start: 20190327
  8. ILARIS [Suspect]
     Active Substance: CANAKINUMAB
     Indication: BONE DISORDER
     Dosage: 300 MG, EVERY 4 WEEKS
     Route: 058
     Dates: start: 20160707, end: 20161114
  9. ILARIS [Suspect]
     Active Substance: CANAKINUMAB
     Dosage: 150 MG, EVERY 4 WEEKS
     Route: 058
     Dates: start: 20161114
  10. ILARIS [Suspect]
     Active Substance: CANAKINUMAB
     Dosage: 150 MG, Q2W
     Route: 058
     Dates: start: 20181227
  11. ILARIS [Suspect]
     Active Substance: CANAKINUMAB
     Dosage: 150 MG, Q2W
     Route: 058
     Dates: start: 20190110
  12. PREDNISONE. [Concomitant]
     Active Substance: PREDNISONE
     Indication: PRODUCT USED FOR UNKNOWN INDICATION
     Dosage: 40 MG, QD
     Route: 065
     Dates: start: 20190120
  13. ILARIS [Suspect]
     Active Substance: CANAKINUMAB
     Dosage: 150 MG, EVERY 2 WEEKS
     Route: 058
     Dates: start: 20160707
  14. ILARIS [Suspect]
     Active Substance: CANAKINUMAB
     Dosage: UNK
     Route: 058
     Dates: start: 20171020
  15. DALTEPARIN [Concomitant]
     Active Substance: DALTEPARIN
     Indication: PRODUCT USED FOR UNKNOWN INDICATION
     Dosage: 5000 AND 10000 UNITS ALTERNATE DAYS
     Route: 058
     Dates: start: 20181117

REACTIONS (27)
  - Chest pain [Unknown]
  - Deep vein thrombosis [Unknown]
  - Paraesthesia [Unknown]
  - Dizziness [Unknown]
  - Therapeutic product effect incomplete [Unknown]
  - Blood pressure increased [Unknown]
  - Syncope [Recovering/Resolving]
  - Urinary tract infection [Unknown]
  - Product storage error [Unknown]
  - Arthralgia [Unknown]
  - Muscle spasms [Unknown]
  - Blood test abnormal [Unknown]
  - Headache [Unknown]
  - Pain [Not Recovered/Not Resolved]
  - Hypoaesthesia [Unknown]
  - Influenza like illness [Not Recovered/Not Resolved]
  - Asthenia [Unknown]
  - Dysuria [Unknown]
  - Pulmonary embolism [Unknown]
  - Gait disturbance [Recovering/Resolving]
  - Condition aggravated [Unknown]
  - Gingival pain [Recovering/Resolving]
  - Product use in unapproved indication [Unknown]
  - Hyperhidrosis [Unknown]
  - Dyspnoea [Unknown]
  - Heart rate abnormal [Unknown]
  - Diarrhoea [Unknown]

NARRATIVE: CASE EVENT DATE: 2016
